FAERS Safety Report 21107074 (Version 2)
Quarter: 2022Q3

REPORT INFORMATION
  Report Type: Report from Study
  Country: US (occurrence: US)
  Receive Date: 20220720
  Receipt Date: 20220818
  Transmission Date: 20221026
  Serious: No
  Sender: FDA-Public Use
  Company Number: US-BAYER-2022A095738

PATIENT
  Sex: Male

DRUGS (2)
  1. COPANLISIB [Suspect]
     Active Substance: COPANLISIB
     Indication: Follicular lymphoma
  2. RITUXIMAB [Suspect]
     Active Substance: RITUXIMAB

REACTIONS (1)
  - Cytopenia [None]
